FAERS Safety Report 11965958 (Version 4)
Quarter: 2016Q1

REPORT INFORMATION
  Report Type: Report from Study
  Country: DE (occurrence: DE)
  Receive Date: 20160127
  Receipt Date: 20160209
  Transmission Date: 20160526
  Serious: Yes (Death, Hospitalization)
  Sender: FDA-Public Use
  Company Number: DE-ROCHE-1699831

PATIENT
  Age: 49 Year
  Sex: Male
  Weight: 75 kg

DRUGS (28)
  1. CISPLATIN. [Suspect]
     Active Substance: CISPLATIN
     Indication: GASTRIC CANCER
     Dosage: MOST RECENT DOSE PRIOR TO THE EVENT: 07/JAN/2016
     Route: 042
     Dates: start: 20151022
  2. METOCLOPRAMID [Concomitant]
     Active Substance: METOCLOPRAMIDE
     Indication: NAUSEA
     Route: 048
     Dates: start: 20151022
  3. TAZOBACTAM [Concomitant]
     Active Substance: TAZOBACTAM
     Indication: SEPSIS
     Route: 042
     Dates: start: 20160124, end: 20160127
  4. MORPHIN [Concomitant]
     Active Substance: MORPHINE
     Indication: PAIN
     Route: 042
     Dates: start: 20160126, end: 20160126
  5. TRASTUZUMAB [Suspect]
     Active Substance: TRASTUZUMAB
     Indication: GASTRIC CANCER
     Dosage: INTRAVENOUS TRASTUZUMAB LOADING DOSE 8 MG/KG,
     Route: 042
     Dates: start: 20151022
  6. PIRITRAMID [Concomitant]
     Indication: SEPSIS
     Route: 042
     Dates: start: 20160125, end: 20160125
  7. PARENTERAL NUTRITION [Concomitant]
     Active Substance: AMINO ACIDS\DEXTROSE\ELECTROLYTES NOS
     Indication: DECREASED APPETITE
     Route: 042
     Dates: start: 20151130, end: 20160126
  8. DEXAMETHASON [Concomitant]
     Active Substance: DEXAMETHASONE
     Indication: NAUSEA
     Route: 048
     Dates: start: 20151022
  9. ONDANSETRON [Concomitant]
     Active Substance: ONDANSETRON
     Indication: NAUSEA
     Route: 048
     Dates: start: 20151030
  10. CLEXANE [Concomitant]
     Active Substance: ENOXAPARIN SODIUM
     Indication: PROPHYLAXIS
     Route: 058
     Dates: start: 20160123
  11. FILGRASTIM [Concomitant]
     Active Substance: FILGRASTIM
     Indication: LEUKOPENIA
     Dosage: DOSE: 48 OTHER
     Route: 058
     Dates: start: 20160125, end: 20160126
  12. BLINDED PERTUZUMAB [Suspect]
     Active Substance: PERTUZUMAB
     Indication: GASTRIC CANCER
     Dosage: MOST RECENT DOSE PRIOR TO THE EVENT: 07/JAN/2016
     Route: 042
     Dates: start: 20151022
  13. CAPECITABINE. [Suspect]
     Active Substance: CAPECITABINE
     Indication: GASTRIC CANCER
     Dosage: MOST RECENT DOSE PRIOR TO THE EVENT: 23/JAN/2016
     Route: 048
     Dates: start: 20151022
  14. PANTOZOL [Concomitant]
     Active Substance: PANTOPRAZOLE SODIUM
     Indication: PROPHYLAXIS
     Route: 048
     Dates: start: 20151204
  15. NOVAMINSULFON [Concomitant]
     Active Substance: METAMIZOLE
     Indication: PAIN
     Route: 042
     Dates: start: 20160124, end: 20160127
  16. FERRO SANOL COMP [Concomitant]
     Indication: ANAEMIA
     Dosage: 1 CAPSULE
     Route: 048
     Dates: start: 20160107, end: 20160122
  17. PACKED RED CELLS [Concomitant]
     Indication: ANAEMIA
     Route: 042
     Dates: start: 20160122, end: 20160122
  18. STEROFUNDIN [Concomitant]
     Indication: FLUID REPLACEMENT
     Route: 042
     Dates: start: 20160123, end: 20160127
  19. ZOPICLON [Concomitant]
     Active Substance: ZOPICLONE
     Indication: SLEEP DISORDER
     Route: 048
     Dates: start: 20151030
  20. KONAKION [Concomitant]
     Active Substance: PHYTONADIONE
     Indication: PROPHYLAXIS
     Route: 042
     Dates: start: 20160126, end: 20160126
  21. METRONIDAZOL [Concomitant]
     Active Substance: METRONIDAZOLE
     Indication: SEPSIS
     Route: 042
     Dates: start: 20160126, end: 20160126
  22. TRASTUZUMAB [Suspect]
     Active Substance: TRASTUZUMAB
     Dosage: MOST RECENT DOSE PRIOR TO THE EVENT: 07/JAN/2016
     Route: 042
  23. UREA. [Concomitant]
     Active Substance: UREA
     Indication: PALMAR-PLANTAR ERYTHRODYSAESTHESIA SYNDROME
     Dosage: DOSE: 1 OTHER?10 PERCENT OINTMENT
     Route: 061
     Dates: start: 20151203
  24. KALINOR [Concomitant]
     Active Substance: POTASSIUM CITRATE
     Indication: HYPOKALAEMIA
     Route: 048
     Dates: start: 20160122
  25. PIPERACILLIN [Concomitant]
     Active Substance: PIPERACILLIN
     Indication: SEPSIS
     Route: 042
     Dates: start: 20160124, end: 20160127
  26. BEPANTHEN NOSE OINTMENT [Concomitant]
     Indication: MUCOSAL INFLAMMATION
     Dosage: DOSE: 1 OTHER
     Route: 061
     Dates: start: 20151112
  27. METOPROLOL. [Concomitant]
     Active Substance: METOPROLOL
     Indication: HYPERTENSION
     Route: 048
     Dates: start: 20160119
  28. MEROPENEM. [Concomitant]
     Active Substance: MEROPENEM
     Route: 042
     Dates: start: 20160126, end: 20160127

REACTIONS (2)
  - Diarrhoea [Not Recovered/Not Resolved]
  - Sepsis [Fatal]

NARRATIVE: CASE EVENT DATE: 20160123
